FAERS Safety Report 9781226 (Version 2)
Quarter: 2014Q2

REPORT INFORMATION
  Report Type: Report from Study
  Country: CA (occurrence: CA)
  Receive Date: 20131224
  Receipt Date: 20140616
  Transmission Date: 20141212
  Serious: Yes (Other)
  Sender: FDA-Public Use
  Company Number: CA-UCBSA-106453

PATIENT
  Age: 42 Year
  Sex: Female
  Weight: 132 kg

DRUGS (6)
  1. CERTOLIZUMAB PEGOL RA [Suspect]
     Indication: RHEUMATOID ARTHRITIS
     Dosage: ONCE IN 2 WEEKS X 3
     Route: 058
     Dates: start: 20120425, end: 20120523
  2. CERTOLIZUMAB PEGOL RA [Suspect]
     Dosage: 200 MG, EV 2 WEEKS(QOW)
     Route: 058
     Dates: start: 20120606, end: 20140526
  3. MTX [Concomitant]
     Indication: RHEUMATOID ARTHRITIS
     Dosage: 15 MG, WEEKLY (QW)
     Route: 058
     Dates: start: 2009
  4. FOLIC ACID [Concomitant]
     Indication: SUPPLEMENTATION THERAPY
     Dosage: 5 MG; 6/7 DAY
     Route: 048
     Dates: start: 2009
  5. PANTOPRAZOLE [Concomitant]
     Indication: PROPHYLAXIS AGAINST GASTROINTESTINAL ULCER
     Dosage: 40 MG DAILY
     Route: 048
  6. IMITREX [Concomitant]
     Indication: MIGRAINE
     Dosage: UNK UNK, AS NEEDED (PRN)
     Route: 048

REACTIONS (3)
  - Rash [Not Recovered/Not Resolved]
  - Psoriasis [Not Recovered/Not Resolved]
  - Infection [Unknown]
